FAERS Safety Report 6199004-0 (Version None)
Quarter: 2009Q2

REPORT INFORMATION
  Report Type: 
  Country: None (occurrence: None)
  Receive Date: 20090522
  Receipt Date: 20090513
  Transmission Date: 20091009
  Serious: Yes (Other)
  Sender: FDA-Public Use
  Company Number: US-ELI_LILLY_AND_COMPANY-US200905002532

PATIENT
  Sex: Female

DRUGS (8)
  1. HUMALOG [Suspect]
     Indication: TYPE 2 DIABETES MELLITUS
  2. HUMALOG [Suspect]
     Dates: start: 20080201, end: 20090301
  3. HUMALOG [Suspect]
     Dosage: 30 U, 3/D
     Dates: start: 20090512
  4. LISINOPRIL [Concomitant]
     Indication: RENAL DISORDER
     Dosage: 5 MG, DAILY (1/D)
  5. SIMVASTATIN [Concomitant]
     Indication: BLOOD CHOLESTEROL INCREASED
     Dosage: 10 MG, DAILY (1/D)
  6. LANTUS [Concomitant]
     Indication: TYPE 2 DIABETES MELLITUS
     Dosage: 16 U, EACH EVENING
     Dates: start: 20090511
  7. BYETTA [Concomitant]
     Indication: TYPE 2 DIABETES MELLITUS
     Dosage: 10 UNK, UNK
     Dates: start: 20090301, end: 20090512
  8. PRANDIN [Concomitant]
     Indication: TYPE 2 DIABETES MELLITUS
     Dates: start: 20090301, end: 20090512

REACTIONS (8)
  - BLOOD CHOLESTEROL INCREASED [None]
  - BLOOD GLUCOSE DECREASED [None]
  - BLOOD GLUCOSE INCREASED [None]
  - BRADYPHRENIA [None]
  - HYPERTENSION [None]
  - LIVER DISORDER [None]
  - OBESITY SURGERY [None]
  - WEIGHT INCREASED [None]
